FAERS Safety Report 13290698 (Version 2)
Quarter: 2017Q2

REPORT INFORMATION
  Report Type: Spontaneous
  Country: US (occurrence: US)
  Receive Date: 20170302
  Receipt Date: 20170511
  Transmission Date: 20170830
  Serious: No
  Sender: FDA-Public Use
  Company Number: US-TEVA-742628ACC

PATIENT
  Age: 44 Year
  Sex: Female

DRUGS (13)
  1. HYDROCODONE W/APAP TAB 10-325MG [Concomitant]
     Dosage: 1 DF=HYDROCODONE 10MG/APAP325MG
  2. MODAFINIL. [Concomitant]
     Active Substance: MODAFINIL
  3. RABEPRAZOLE TAB 20MG [Concomitant]
  4. MELOXICAM TAB 15MG [Concomitant]
  5. APAP W/CODEINE [Concomitant]
     Active Substance: ACETAMINOPHEN\CODEINE PHOSPHATE
     Dosage: 1DF=APAP 300MG/CODEINE 30MG
  6. MELOXICAM TAB 15MG [Concomitant]
  7. FENTANYL DIS 25MCG/HR [Concomitant]
  8. BACLOFEN TAB 10MG [Concomitant]
  9. GABAPENTIN CAP 300MG [Concomitant]
  10. VITAMIN D CAP 50000UNT [Concomitant]
  11. COPAXONE [Suspect]
     Active Substance: GLATIRAMER ACETATE
     Route: 058
     Dates: start: 20140508
  12. OXYBUTYNIN TAB 15MG ER [Concomitant]
  13. CITALOPRAM TAB 40MG [Concomitant]

REACTIONS (2)
  - Muscular weakness [Recovered/Resolved]
  - Malaise [Recovered/Resolved]

NARRATIVE: CASE EVENT DATE: 201612
